FAERS Safety Report 10068166 (Version 1)
Quarter: 2014Q2

REPORT INFORMATION
  Report Type: Spontaneous
  Country: US (occurrence: US)
  Receive Date: 20140409
  Receipt Date: 20140409
  Transmission Date: 20141212
  Serious: No
  Sender: FDA-Public Use
  Company Number: US-PFIZER INC-2014096215

PATIENT
  Age: 67 Year
  Sex: Female
  Weight: 50.79 kg

DRUGS (1)
  1. SUTENT [Suspect]
     Indication: RENAL CELL CARCINOMA
     Dosage: 50 MG, CYCLIC (FOUR WEEKS ON AND TWO WEEKS OFF)
     Dates: start: 20140221, end: 20140320

REACTIONS (2)
  - Red blood cell count decreased [Unknown]
  - Haemoglobin decreased [Unknown]
